FAERS Safety Report 9831623 (Version 1)
Quarter: 2014Q1

REPORT INFORMATION
  Report Type: Spontaneous
  Country: US (occurrence: US)
  Receive Date: 20140121
  Receipt Date: 20140121
  Transmission Date: 20141002
  Serious: No
  Sender: FDA-Public Use
  Company Number: US-PFIZER INC-2014018470

PATIENT
  Age: 67 Year
  Sex: Female
  Weight: 75.74 kg

DRUGS (5)
  1. LYRICA [Suspect]
     Indication: NERVE COMPRESSION
     Dosage: 50 MG, DAILY
     Dates: start: 20140106, end: 20140112
  2. LYRICA [Suspect]
     Dosage: 75 MG, 2X/DAY
     Dates: start: 20140113
  3. LEXAPRO [Concomitant]
     Indication: MEMORY IMPAIRMENT
     Dosage: UNK, DAILY
  4. LEXAPRO [Concomitant]
     Indication: ANXIETY
  5. LEVOTHYROXINE [Concomitant]
     Indication: THYROID DISORDER
     Dosage: UNK

REACTIONS (1)
  - Dizziness [Unknown]
